FAERS Safety Report 19244371 (Version 2)
Quarter: 2021Q2

REPORT INFORMATION
  Report Type: Spontaneous
  Country: IN (occurrence: IN)
  Receive Date: 20210511
  Receipt Date: 20210528
  Transmission Date: 20210717
  Serious: Yes (Other)
  Sender: FDA-Public Use
  Company Number: IN-PFIZER INC-2021247900

PATIENT
  Age: 67 Year
  Sex: Male
  Weight: 73.3 kg

DRUGS (6)
  1. METOCLOPRAMIDE HCL [Concomitant]
     Active Substance: METOCLOPRAMIDE HYDROCHLORIDE
     Dosage: UNK
  2. CRIZALK [Suspect]
     Active Substance: CRIZOTINIB
     Indication: LUNG ADENOCARCINOMA
     Dosage: 250 MG, 2X/DAY
     Route: 048
     Dates: start: 20210224
  3. PROPRANOLOL [Concomitant]
     Active Substance: PROPRANOLOL HYDROCHLORIDE
     Indication: TREMOR
  4. ZOLEDRONIC ACID [Concomitant]
     Active Substance: ZOLEDRONIC ACID
     Dosage: UNK
     Dates: start: 20210212
  5. CRIZALK [Suspect]
     Active Substance: CRIZOTINIB
     Indication: BREAST CANCER METASTATIC
     Dosage: 250 MG, 2X/DAY (8:00AM, 8:00PM. SWALLOWED WHOLE WITH WATER, WITH OR WITHOUT FOOD)
     Route: 048
     Dates: start: 20210223
  6. LACTULOSE. [Concomitant]
     Active Substance: LACTULOSE
     Dosage: UNK
     Dates: start: 20210324

REACTIONS (8)
  - Blood pressure decreased [Unknown]
  - Off label use [Unknown]
  - Neoplasm progression [Unknown]
  - Haemoglobin decreased [Unknown]
  - Arthralgia [Unknown]
  - Pulmonary arterial hypertension [Unknown]
  - Pleural effusion [Recovering/Resolving]
  - Constipation [Unknown]
